APPROVED DRUG PRODUCT: CAPTOPRIL
Active Ingredient: CAPTOPRIL
Strength: 100MG
Dosage Form/Route: TABLET;ORAL
Application: A074472 | Product #004
Applicant: APOTHECON INC DIV BRISTOL MYERS SQUIBB
Approved: Mar 31, 1995 | RLD: No | RS: No | Type: DISCN